FAERS Safety Report 7009473-1 (Version None)
Quarter: 2010Q3

REPORT INFORMATION
  Report Type: 
  Country: None (occurrence: None)
  Receive Date: 20100923
  Receipt Date: 20100914
  Transmission Date: 20110219
  Serious: Yes (Other)
  Sender: FDA-Public Use
  Company Number: US-US-EMD SERONO, INC.-7017680

PATIENT
  Sex: Female

DRUGS (4)
  1. REBIF [Suspect]
     Indication: MULTIPLE SCLEROSIS
     Route: 058
     Dates: start: 20090915
  2. METFORMIN [Concomitant]
     Indication: GLUCOSE TOLERANCE IMPAIRED
  3. YAZ [Concomitant]
     Indication: POLYCYSTIC OVARIES
  4. SPIRONLACTONE [Concomitant]
     Indication: POLYCYSTIC OVARIES

REACTIONS (2)
  - PSORIASIS [None]
  - STRESS [None]
